FAERS Safety Report 5101964-3 (Version None)
Quarter: 2006Q3

REPORT INFORMATION
  Report Type: 
  Country: None (occurrence: None)
  Receive Date: 20060731
  Receipt Date: 20060511
  Transmission Date: 20061208
  Serious: No
  Sender: FDA-Public Use
  Company Number: 2006PV013688

PATIENT
  Age: 67 Year
  Sex: Female
  Weight: 143.7903 kg

DRUGS (5)
  1. BYETTA [Suspect]
     Indication: DIABETES MELLITUS NON-INSULIN-DEPENDENT
     Dosage: SEE IMAGE
     Route: 058
     Dates: start: 20060502, end: 20060509
  2. BYETTA [Suspect]
     Indication: DIABETES MELLITUS NON-INSULIN-DEPENDENT
     Dosage: SEE IMAGE
     Route: 058
     Dates: start: 20060509
  3. LANTUS [Concomitant]
  4. METFORMIN HCL [Concomitant]
  5. ACTOS /USA/ [Concomitant]

REACTIONS (3)
  - ANOREXIA [None]
  - BLOOD GLUCOSE INCREASED [None]
  - THERAPEUTIC RESPONSE UNEXPECTED [None]
